FAERS Safety Report 7136246-1 (Version None)
Quarter: 2010Q4

REPORT INFORMATION
  Report Type: 
  Country: None (occurrence: None)
  Receive Date: 20101206
  Receipt Date: 20100608
  Transmission Date: 20110411
  Serious: Yes (Hospitalization)
  Sender: FDA-Public Use
  Company Number: US-BIOGENIDEC-2010BI010948

PATIENT
  Age: 53 Year
  Sex: Female
  Weight: 58 kg

DRUGS (1)
  1. TYSABRI [Suspect]
     Indication: MULTIPLE SCLEROSIS
     Route: 042
     Dates: start: 20090731, end: 20100325

REACTIONS (8)
  - ANXIETY [None]
  - HYPERSENSITIVITY [None]
  - MOBILITY DECREASED [None]
  - MULTIPLE SCLEROSIS [None]
  - NEUROGENIC BOWEL [None]
  - PAIN IN EXTREMITY [None]
  - SKIN DISORDER [None]
  - VENOUS INSUFFICIENCY [None]
